FAERS Safety Report 16568470 (Version 1)
Quarter: 2019Q3

REPORT INFORMATION
  Report Type: Spontaneous
  Country: US (occurrence: US)
  Receive Date: 20190712
  Receipt Date: 20190712
  Transmission Date: 20191004
  Serious: Yes (Hospitalization)
  Sender: FDA-Public Use
  Company Number: PHHY2019US155115

PATIENT
  Age: 18 Year
  Sex: Female

DRUGS (1)
  1. FLUOXETINE [Suspect]
     Active Substance: FLUOXETINE HYDROCHLORIDE
     Indication: ANOREXIA NERVOSA
     Dosage: 60 MG, QD
     Route: 065

REACTIONS (4)
  - Diabetes insipidus [Unknown]
  - Polyuria [Recovering/Resolving]
  - Product use in unapproved indication [Unknown]
  - Hypoglycaemia [Unknown]
